FAERS Safety Report 13418173 (Version 1)
Quarter: 2017Q2

REPORT INFORMATION
  Report Type: Report from Study
  Country: CN (occurrence: CN)
  Receive Date: 20170406
  Receipt Date: 20170406
  Transmission Date: 20170830
  Serious: Yes (Death)
  Sender: FDA-Public Use
  Company Number: CN-PFIZER INC-2016519952

PATIENT
  Age: 3 Year
  Sex: Male

DRUGS (21)
  1. METHOTREXATE. [Suspect]
     Active Substance: METHOTREXATE
     Dosage: 5G/M2 (4H CONTINUOUS) ON DAY 1
     Route: 041
  2. METHOTREXATE. [Suspect]
     Active Substance: METHOTREXATE
     Dosage: 8 MG/M2 (4H CONTINUOUS) DAY 2
     Route: 041
  3. VINCRISTINE [Suspect]
     Active Substance: VINCRISTINE
     Indication: BURKITT^S LYMPHOMA
     Dosage: 2 MG/M2, (MAXIMUM DOSAGE OF 2 MG), DAY 1
     Route: 040
  4. METHOTREXATE. [Suspect]
     Active Substance: METHOTREXATE
     Indication: BURKITT^S LYMPHOMA
     Dosage: 15 MG, DAYS 1, 3, 5
     Route: 037
  5. VINCRISTINE [Suspect]
     Active Substance: VINCRISTINE
     Dosage: 2 MG/M2, (MAXIMUM DOSAGE OF 2 MG),DAY 1
     Route: 040
  6. PREDNISONE. [Suspect]
     Active Substance: PREDNISONE
     Indication: BURKITT^S LYMPHOMA
     Dosage: 60 MG/M2, 2 ORAL DOSES,DAYS 1-7
     Route: 048
  7. PREDNISONE. [Suspect]
     Active Substance: PREDNISONE
     Dosage: 60 MG/M2, 2 ORAL DOSES, DAYS 1-5, TEMPORARILY STOP FOR 3D
     Route: 048
  8. METHOTREXATE. [Suspect]
     Active Substance: METHOTREXATE
     Dosage: 15 MG/M2, ON DAYS 2,3,4
     Route: 037
  9. DEXAMETHASONE. [Suspect]
     Active Substance: DEXAMETHASONE
     Indication: BURKITT^S LYMPHOMA
     Dosage: 4 MG, DAYS 1, 3, 5
     Route: 037
  10. CYCLOPHOSPHAMIDE. [Suspect]
     Active Substance: CYCLOPHOSPHAMIDE
     Dosage: 0.5 G/M2, (TWICE EVERY 12H),DAYS 2, 3, 4
     Route: 041
  11. CYTARABINE. [Suspect]
     Active Substance: CYTARABINE
     Indication: BURKITT^S LYMPHOMA
     Dosage: 30 MG, DAYS 1, 3, 5
     Route: 037
  12. CYTARABINE. [Suspect]
     Active Substance: CYTARABINE
     Dosage: 30 MG DAYS 2, 4, 6
     Route: 037
  13. DEXAMETHASONE. [Suspect]
     Active Substance: DEXAMETHASONE
     Dosage: 4 MG,DAYS 2, 4, 6
     Route: 037
  14. CYTARABINE. [Suspect]
     Active Substance: CYTARABINE
     Dosage: 30 MG, DAY 1
     Route: 037
  15. FOLINIC ACID [Suspect]
     Active Substance: LEUCOVORIN
     Indication: BURKITT^S LYMPHOMA
     Dosage: 15 MG/M2, (ONCE EVERY 6H),DAYS 2-4 (24H AFTER TAKING METHOTREXATE)
     Route: 048
  16. DAUNORUBICIN HCL [Suspect]
     Active Substance: DAUNORUBICIN HYDROCHLORIDE
     Indication: BURKITT^S LYMPHOMA
     Dosage: 30 MG/M2, (6H CONTINUOUS),DAYS 2, 3
     Route: 041
  17. METHOTREXATE. [Suspect]
     Active Substance: METHOTREXATE
     Dosage: 15 MG, DAYS 2, 4, 6
     Route: 037
  18. DEXAMETHASONE. [Suspect]
     Active Substance: DEXAMETHASONE
     Dosage: 4 MG,  DAY 1
     Route: 037
  19. CYCLOPHOSPHAMIDE. [Suspect]
     Active Substance: CYCLOPHOSPHAMIDE
     Dosage: 1 G/M2, (TWICE EVERY 12H),DAYS 2, 3, 4
     Route: 041
  20. CYCLOPHOSPHAMIDE. [Suspect]
     Active Substance: CYCLOPHOSPHAMIDE
     Indication: BURKITT^S LYMPHOMA
     Dosage: 0.3 G/M2 (DAY 1)
     Route: 041
  21. RITUXIMAB [Suspect]
     Active Substance: RITUXIMAB
     Indication: BURKITT^S LYMPHOMA
     Dosage: 375 MG/M2, UNK, 1 DAY BEFORE CHEMOTHERAPY, DAY OF CHEMOTHERAPY
     Route: 041

REACTIONS (2)
  - Tumour lysis syndrome [Fatal]
  - Renal impairment [Fatal]
